FAERS Safety Report 22091797 (Version 2)
Quarter: 2023Q2

REPORT INFORMATION
  Report Type: Spontaneous
  Country: DE (occurrence: DE)
  Receive Date: 20230314
  Receipt Date: 20230413
  Transmission Date: 20230721
  Serious: Yes (Other)
  Sender: FDA-Public Use
  Company Number: DE-BAYER-2023A030483

PATIENT
  Age: 95 Year
  Sex: Female

DRUGS (2)
  1. EYLEA [Suspect]
     Active Substance: AFLIBERCEPT
     Indication: Muscle atrophy
     Dosage: SOLUTION FOR INJECTION, STRENGTH: 40MG/ML
  2. LATANOPROST [Concomitant]
     Active Substance: LATANOPROST
     Indication: Glaucoma

REACTIONS (2)
  - Corneal deposits [Recovered/Resolved]
  - Anterior chamber cell [Recovered/Resolved]
